FAERS Safety Report 12329404 (Version 2)
Quarter: 2017Q2

REPORT INFORMATION
  Report Type: Spontaneous
  Country: US (occurrence: US)
  Receive Date: 20160503
  Receipt Date: 20170626
  Transmission Date: 20170830
  Serious: No
  Sender: FDA-Public Use
  Company Number: US-ACTELION-A-NJ2016-134073

PATIENT
  Age: 9 Year
  Sex: Male

DRUGS (4)
  1. SILDENAFIL. [Concomitant]
     Active Substance: SILDENAFIL
  2. REMODULIN [Concomitant]
     Active Substance: TREPROSTINIL
  3. REVATIO [Concomitant]
     Active Substance: SILDENAFIL CITRATE
  4. TRACLEER [Suspect]
     Active Substance: BOSENTAN
     Indication: PULMONARY ARTERIAL HYPERTENSION
     Dosage: 62.5 MG, BID
     Route: 048

REACTIONS (7)
  - Skin irritation [Unknown]
  - Infusion site pruritus [Unknown]
  - Infusion site scar [Unknown]
  - Infusion site erythema [Unknown]
  - Device dislocation [Unknown]
  - Infusion site swelling [Unknown]
  - Infusion site infection [Unknown]

NARRATIVE: CASE EVENT DATE: 20170618
